FAERS Safety Report 18962822 (Version 1)
Quarter: 2021Q1

REPORT INFORMATION
  Report Type: Spontaneous
  Country: US (occurrence: US)
  Receive Date: 20210302
  Receipt Date: 20210302
  Transmission Date: 20210420
  Serious: No
  Sender: FDA-Public Use
  Company Number: None

PATIENT
  Age: 76 Year
  Sex: Male

DRUGS (3)
  1. JUXTAPID [Suspect]
     Active Substance: LOMITAPIDE MESYLATE
     Route: 048
     Dates: start: 20180201
  2. JUXTAPID [Concomitant]
     Active Substance: LOMITAPIDE MESYLATE
     Dates: start: 20180201
  3. COVID?19 VACCINE NOS. [Suspect]
     Active Substance: COVID-19 VACCINE NOS

REACTIONS (2)
  - Injection site rash [None]
  - COVID-19 immunisation [None]

NARRATIVE: CASE EVENT DATE: 20210302
